FAERS Safety Report 17929676 (Version 1)
Quarter: 2020Q2

REPORT INFORMATION
  Report Type: Spontaneous
  Country: US (occurrence: US)
  Receive Date: 20200623
  Receipt Date: 20200623
  Transmission Date: 20200714
  Serious: Yes (Hospitalization)
  Sender: FDA-Public Use
  Company Number: None

PATIENT
  Age: 51 Year
  Sex: Male
  Weight: 106.65 kg

DRUGS (1)
  1. NUCALA [Suspect]
     Active Substance: MEPOLIZUMAB
     Indication: ASTHMA
     Dosage: ?          OTHER FREQUENCY:4 WEEKS;?
     Route: 058
     Dates: start: 20200526

REACTIONS (2)
  - Blood creatine phosphokinase increased [None]
  - Thrombocytopenia [None]

NARRATIVE: CASE EVENT DATE: 20200618
